FAERS Safety Report 6949181-6 (Version None)
Quarter: 2010Q3

REPORT INFORMATION
  Report Type: 
  Country: None (occurrence: None)
  Receive Date: 20100828
  Receipt Date: 20091207
  Transmission Date: 20110219
  Serious: No
  Sender: FDA-Public Use
  Company Number: US-ABBOTT-09P-163-0613469-00

PATIENT
  Age: 47 Year
  Sex: Male

DRUGS (2)
  1. NIASPAN [Suspect]
     Indication: BLOOD CHOLESTEROL INCREASED
     Dates: start: 20091101
  2. FISH OIL [Concomitant]
     Indication: MEDICAL DIET
     Dosage: UNKNOWN

REACTIONS (2)
  - PRURITUS [None]
  - RASH MACULAR [None]
